FAERS Safety Report 8283234-8 (Version None)
Quarter: 2012Q2

REPORT INFORMATION
  Report Type: 
  Country: None (occurrence: None)
  Receive Date: 20120413
  Receipt Date: 20120411
  Transmission Date: 20120825
  Serious: Yes (Hospitalization, Other)
  Sender: FDA-Public Use
  Company Number: US-MERCK-1107USA00199

PATIENT
  Age: 45 Year
  Sex: Female

DRUGS (6)
  1. INSULIN HUMAN [Concomitant]
     Indication: TYPE 1 DIABETES MELLITUS
     Route: 065
  2. FOSAMAX [Suspect]
     Route: 048
     Dates: start: 20000101, end: 20110701
  3. LEVOTHYROXINE SODIUM [Concomitant]
     Indication: HYPOTHYROIDISM
     Route: 065
  4. FOSAMAX [Suspect]
     Indication: OSTEOPOROSIS
     Route: 048
     Dates: start: 20000101, end: 20110701
  5. LANTUS [Concomitant]
     Indication: TYPE 1 DIABETES MELLITUS
     Route: 065
  6. ALENDRONATE SODIUM [Suspect]
     Indication: OSTEOPOROSIS
     Route: 048
     Dates: start: 20080521, end: 20080101

REACTIONS (60)
  - ANKLE FRACTURE [None]
  - ARTHROPATHY [None]
  - MYELITIS TRANSVERSE [None]
  - DIABETIC FOOT [None]
  - TONSILLAR DISORDER [None]
  - SPLENOMEGALY [None]
  - HYPOXIA [None]
  - HEPATOMEGALY [None]
  - ANXIETY [None]
  - NEPHROLITHIASIS [None]
  - URINARY TRACT INFECTION [None]
  - AGGRESSION [None]
  - DEHYDRATION [None]
  - NEUROGENIC BLADDER [None]
  - SUPRAVENTRICULAR EXTRASYSTOLES [None]
  - OEDEMA PERIPHERAL [None]
  - FEMUR FRACTURE [None]
  - ANAEMIA POSTOPERATIVE [None]
  - PULMONARY EMBOLISM [None]
  - CONNECTIVE TISSUE DISORDER [None]
  - FRACTURE DELAYED UNION [None]
  - DRUG PRESCRIBING ERROR [None]
  - OESOPHAGEAL ULCER [None]
  - KYPHOSCOLIOSIS [None]
  - HYPERTENSION [None]
  - CELLULITIS [None]
  - HAEMATURIA [None]
  - SEPSIS [None]
  - URINARY RETENTION [None]
  - DYSURIA [None]
  - TACHYCARDIA [None]
  - RESTRICTIVE PULMONARY DISEASE [None]
  - PULMONARY FIBROSIS [None]
  - HYPONATRAEMIA [None]
  - ANAEMIA [None]
  - DEPRESSION SUICIDAL [None]
  - PLEURAL EFFUSION [None]
  - NEURALGIA [None]
  - MALNUTRITION [None]
  - PNEUMONIA [None]
  - INSOMNIA [None]
  - CONSTIPATION [None]
  - BLADDER DILATATION [None]
  - SUICIDE ATTEMPT [None]
  - HYPEROSMOLAR STATE [None]
  - SKIN ULCER [None]
  - PYREXIA [None]
  - DIABETIC NEUROPATHY [None]
  - DIABETIC VASCULAR DISORDER [None]
  - OSTEOARTHRITIS [None]
  - MUSCLE SPASMS [None]
  - POSTOPERATIVE ILEUS [None]
  - DEEP VEIN THROMBOSIS [None]
  - BLADDER DISORDER [None]
  - CARDIAC MURMUR [None]
  - PANIC DISORDER [None]
  - JOINT CONTRACTURE [None]
  - CHRONIC OBSTRUCTIVE PULMONARY DISEASE [None]
  - ATROPHIC VULVOVAGINITIS [None]
  - PAIN IN EXTREMITY [None]
